FAERS Safety Report 19787629 (Version 3)
Quarter: 2021Q4

REPORT INFORMATION
  Report Type: Spontaneous
  Country: AR (occurrence: AR)
  Receive Date: 20210903
  Receipt Date: 20211019
  Transmission Date: 20220303
  Serious: Yes (Other)
  Sender: FDA-Public Use
  Company Number: AR-PFIZER INC-202101022512

PATIENT
  Age: 56 Year
  Sex: Female

DRUGS (1)
  1. ENBREL [Suspect]
     Active Substance: ETANERCEPT
     Indication: Rheumatoid arthritis
     Dosage: 50 MILLIGRAM, QWK
     Route: 065
     Dates: start: 20150901

REACTIONS (4)
  - COVID-19 [Recovered/Resolved]
  - Device failure [Unknown]
  - Drug dose omission by device [Unknown]
  - Pain [Unknown]

NARRATIVE: CASE EVENT DATE: 20210701
